FAERS Safety Report 14358285 (Version 1)
Quarter: 2018Q1

REPORT INFORMATION
  Report Type: Spontaneous
  Country: US (occurrence: US)
  Receive Date: 20180105
  Receipt Date: 20180105
  Transmission Date: 20180509
  Serious: No
  Sender: FDA-Public Use
  Company Number: US-SA-2017SA200974

PATIENT
  Age: 33 Year
  Sex: Male

DRUGS (4)
  1. TRIAMCINOLONE [Concomitant]
     Active Substance: TRIAMCINOLONE
     Route: 065
  2. DUPIXENT [Suspect]
     Active Substance: DUPILUMAB
     Indication: DERMATITIS ATOPIC
     Route: 058
     Dates: start: 201710
  3. DUPIXENT [Suspect]
     Active Substance: DUPILUMAB
     Indication: DERMATITIS ATOPIC
     Route: 058
     Dates: start: 20170928, end: 20170928
  4. VITAMIN C [Concomitant]
     Active Substance: ASCORBIC ACID
     Route: 065

REACTIONS (9)
  - Dermatitis atopic [Not Recovered/Not Resolved]
  - Skin exfoliation [Not Recovered/Not Resolved]
  - Pruritus [Not Recovered/Not Resolved]
  - Skin atrophy [Not Recovered/Not Resolved]
  - Drug ineffective [Unknown]
  - Generalised erythema [Not Recovered/Not Resolved]
  - Erythema [Recovered/Resolved]
  - Skin discolouration [Not Recovered/Not Resolved]
  - Glare [Not Recovered/Not Resolved]

NARRATIVE: CASE EVENT DATE: 2017
